FAERS Safety Report 11790146 (Version 1)
Quarter: 2015Q4

REPORT INFORMATION
  Report Type: Spontaneous
  Country: RO (occurrence: RO)
  Receive Date: 20151201
  Receipt Date: 20151201
  Transmission Date: 20160305
  Serious: Yes (Other)
  Sender: FDA-Public Use
  Company Number: RO-BAYER-2015-471782

PATIENT
  Sex: Female
  Weight: 1.6 kg

DRUGS (4)
  1. ACETYLSALICYLIC ACID({=100 MG) [Suspect]
     Active Substance: ASPIRIN
     Dosage: VIA MOTHER
     Route: 015
  2. HEPARIN [Concomitant]
     Active Substance: HEPARIN SODIUM
     Dosage: VIA MOTHER
  3. ACETYLSALICYLIC ACID({=100 MG) [Suspect]
     Active Substance: ASPIRIN
     Dosage: VIA MOTHER
     Route: 015
  4. HEPARIN [Concomitant]
     Active Substance: HEPARIN SODIUM
     Dosage: VIA MOTHER

REACTIONS (3)
  - Low birth weight baby [None]
  - Premature baby [None]
  - Foetal exposure timing unspecified [None]
